FAERS Safety Report 4872746-2 (Version None)
Quarter: 2006Q1

REPORT INFORMATION
  Report Type: 
  Country: None (occurrence: None)
  Receive Date: 20060103
  Receipt Date: 20051221
  Transmission Date: 20060701
  Serious: Yes (Other)
  Sender: FDA-Public Use
  Company Number: DE_051017297

PATIENT
  Age: 70 Year
  Sex: Female
  Weight: 63 kg

DRUGS (7)
  1. ZYPREXA [Suspect]
     Indication: PARANOIA
     Dosage: 15 MG, DAILY (1/D), ORAL
     Route: 048
     Dates: end: 20050803
  2. CITALOPRAM HYDROBROMIDE [Concomitant]
  3. DYNACIL (FOSINOPRIL SODIUM) [Concomitant]
  4. ALDACTONE [Concomitant]
  5. TOREM (TORASEMIDE SODIUM) [Concomitant]
  6. BELOC-ZOC MITE (METOPROLOL SUCCINATE) [Concomitant]
  7. LORAZEPAM [Concomitant]

REACTIONS (7)
  - DRUG INTERACTION [None]
  - EXTRAPYRAMIDAL DISORDER [None]
  - NEUROLEPTIC MALIGNANT SYNDROME [None]
  - PLEUROTHOTONUS [None]
  - RENAL FAILURE [None]
  - RHABDOMYOLYSIS [None]
  - SEROTONIN SYNDROME [None]
